FAERS Safety Report 6234828-2 (Version None)
Quarter: 2009Q2

REPORT INFORMATION
  Report Type: 
  Country: None (occurrence: None)
  Receive Date: 20090615
  Receipt Date: 20090511
  Transmission Date: 20091009
  Serious: No
  Sender: FDA-Public Use
  Company Number: DSA_33634_2009

PATIENT
  Sex: Male

DRUGS (1)
  1. XENAZINE [Suspect]
     Indication: TOURETTE'S DISORDER
     Dosage: 25 MG TID
     Dates: start: 20090216, end: 20090505

REACTIONS (2)
  - OBSESSIVE-COMPULSIVE DISORDER [None]
  - THOUGHT BLOCKING [None]
